FAERS Safety Report 22310842 (Version 2)
Quarter: 2023Q2

REPORT INFORMATION
  Report Type: Report from Study
  Country: US (occurrence: US)
  Receive Date: 20230511
  Receipt Date: 20230626
  Transmission Date: 20230722
  Serious: No
  Sender: FDA-Public Use
  Company Number: US-BIOGEN-2023BI01203279

PATIENT
  Age: 69 Year
  Sex: Male
  Weight: 74.4 kg

DRUGS (4)
  1. ADUCANUMAB [Suspect]
     Active Substance: ADUCANUMAB
     Indication: Dementia Alzheimer^s type
     Route: 050
     Dates: start: 20230201, end: 20230201
  2. ADUCANUMAB [Suspect]
     Active Substance: ADUCANUMAB
     Route: 050
     Dates: start: 20230301, end: 20230301
  3. ADUCANUMAB [Suspect]
     Active Substance: ADUCANUMAB
     Route: 050
     Dates: start: 20230329, end: 20230329
  4. ADUCANUMAB [Suspect]
     Active Substance: ADUCANUMAB
     Route: 050
     Dates: start: 20230426, end: 20230426

REACTIONS (2)
  - Amyloid related imaging abnormality-oedema/effusion [Not Recovered/Not Resolved]
  - Amyloid related imaging abnormality-microhaemorrhages and haemosiderin deposits [Not Recovered/Not Resolved]

NARRATIVE: CASE EVENT DATE: 20230501
